FAERS Safety Report 18881637 (Version 3)
Quarter: 2021Q1

REPORT INFORMATION
  Report Type: Report from Study
  Country: US (occurrence: US)
  Receive Date: 20210212
  Receipt Date: 20210311
  Transmission Date: 20210420
  Serious: No
  Sender: FDA-Public Use
  Company Number: US-AMGEN-USASP2021020992

PATIENT
  Age: 60 Year
  Sex: Male

DRUGS (1)
  1. REPATHA [Suspect]
     Active Substance: EVOLOCUMAB
     Indication: HYPERCHOLESTEROLAEMIA
     Dosage: 140 MILLIGRAM, Q2WK
     Route: 065

REACTIONS (8)
  - Irritability [Unknown]
  - Eye irritation [Unknown]
  - Rhinorrhoea [Unknown]
  - Dry eye [Unknown]
  - Arthralgia [Unknown]
  - Fatigue [Unknown]
  - Eye pruritus [Unknown]
  - Sinus disorder [Unknown]

NARRATIVE: CASE EVENT DATE: 202102
